FAERS Safety Report 5207201-3 (Version None)
Quarter: 2007Q1

REPORT INFORMATION
  Report Type: 
  Country: None (occurrence: None)
  Receive Date: 20070112
  Receipt Date: 20070105
  Transmission Date: 20070707
  Serious: Yes (Other)
  Sender: FDA-Public Use
  Company Number: CH-GLAXOSMITHKLINE-B0452419A

PATIENT
  Sex: Male
  Weight: 182 kg

DRUGS (4)
  1. AVANDAMET [Suspect]
     Dosage: 1TAB TWICE PER DAY
     Route: 048
     Dates: start: 20060221
  2. HUMALOG [Concomitant]
     Route: 065
  3. ACE INHIBITOR [Concomitant]
     Route: 065
  4. CHOLESTEROL REDUCING AGENT NAME NOT KNOWN [Concomitant]
     Route: 065

REACTIONS (2)
  - DIABETES MELLITUS [None]
  - WEIGHT INCREASED [None]
